FAERS Safety Report 12601323 (Version 1)
Quarter: 2016Q3

REPORT INFORMATION
  Report Type: Spontaneous
  Country: US (occurrence: None)
  Receive Date: 20160727
  Receipt Date: 20160727
  Transmission Date: 20161109
  Serious: Yes (Death)
  Sender: FDA-Public Use
  Company Number: None

PATIENT
  Age: 73 Year
  Sex: Male
  Weight: 101 kg

DRUGS (1)
  1. VENETOCLAX, 50 MG [Suspect]
     Active Substance: VENETOCLAX
     Indication: CHRONIC LYMPHOCYTIC LEUKAEMIA
     Route: 048
     Dates: start: 20160718, end: 20160725

REACTIONS (5)
  - Fall [None]
  - Cardio-respiratory arrest [None]
  - Pulmonary embolism [None]
  - Pulseless electrical activity [None]
  - Loss of consciousness [None]

NARRATIVE: CASE EVENT DATE: 20160726
